FAERS Safety Report 12950741 (Version 1)
Quarter: 2016Q4

REPORT INFORMATION
  Report Type: Other
  Country: None (occurrence: CH)
  Receive Date: 20161116
  Receipt Date: 20161116
  Transmission Date: 20170207
  Serious: Yes (Life-Threatening, Hospitalization, Other)
  Sender: FDA-Public Use
  Company Number: CH-INTERNATIONAL MEDICATION SYSTEMS, LIMITED-1059641

PATIENT
  Sex: Male

DRUGS (2)
  1. LIDOCAINE. [Concomitant]
     Active Substance: LIDOCAINE
  2. AMIODARONE [Suspect]
     Active Substance: AMIODARONE
     Indication: ARRHYTHMIA

REACTIONS (1)
  - Drug ineffective [None]
